FAERS Safety Report 11774355 (Version 1)
Quarter: 2015Q4

REPORT INFORMATION
  Report Type: Spontaneous
  Country: CA (occurrence: CA)
  Receive Date: 20151124
  Receipt Date: 20151124
  Transmission Date: 20160304
  Serious: Yes (Death)
  Sender: FDA-Public Use
  Company Number: CA-IKARIA-201510000276

PATIENT

DRUGS (2)
  1. NITRIC OXIDE. [Suspect]
     Active Substance: NITRIC OXIDE
     Indication: CONGENITAL DIAPHRAGMATIC HERNIA
     Dosage: UNKNOWN DOSE
  2. NITRIC OXIDE. [Suspect]
     Active Substance: NITRIC OXIDE
     Indication: PERSISTENT FOETAL CIRCULATION

REACTIONS (2)
  - Rebound effect [Fatal]
  - Drug ineffective for unapproved indication [Unknown]
